FAERS Safety Report 4608400-1 (Version None)
Quarter: 2005Q1

REPORT INFORMATION
  Report Type: 
  Country: None (occurrence: None)
  Receive Date: 20050311
  Receipt Date: 20050311
  Transmission Date: 20050727
  Serious: Yes (Other)
  Sender: FDA-Public Use
  Company Number: None

PATIENT
  Age: 81 Year
  Sex: Female
  Weight: 77.3 kg

DRUGS (1)
  1. TEQUIN [Suspect]
     Indication: ASTHMA
     Dosage: 400 MG IV DAILY
     Route: 042
     Dates: start: 20041009, end: 20041011

REACTIONS (1)
  - HYPOGLYCAEMIA [None]
